FAERS Safety Report 7893671-9 (Version None)
Quarter: 2011Q4

REPORT INFORMATION
  Report Type: 
  Country: None (occurrence: None)
  Receive Date: 20111104
  Receipt Date: 20111103
  Transmission Date: 20120403
  Serious: Yes (Other)
  Sender: FDA-Public Use
  Company Number: JP-BRISTOL-MYERS SQUIBB COMPANY-16189136

PATIENT
  Sex: Male

DRUGS (3)
  1. TS-1 [Concomitant]
     Indication: COLORECTAL CANCER
  2. ERBITUX [Suspect]
     Indication: COLORECTAL CANCER
     Dosage: REDUCED TO 250MG/M2
     Route: 042
  3. IRINOTECAN HCL [Concomitant]
     Indication: COLORECTAL CANCER
     Route: 042

REACTIONS (4)
  - FATIGUE [None]
  - GASTROINTESTINAL HAEMORRHAGE [None]
  - ANAEMIA [None]
  - DECREASED APPETITE [None]
